FAERS Safety Report 9349945 (Version 3)
Quarter: 2013Q3

REPORT INFORMATION
  Report Type: Report from Study
  Country: BR (occurrence: BR)
  Receive Date: 20130614
  Receipt Date: 20130808
  Transmission Date: 20140515
  Serious: Yes (Hospitalization, Other)
  Sender: FDA-Public Use
  Company Number: PHHO2013BR007768

PATIENT
  Age: 38 Year
  Sex: Male
  Weight: 77 kg

DRUGS (5)
  1. MYFORTIC [Suspect]
     Indication: RENAL TRANSPLANT
     Dosage: 720 MG, BID
     Route: 048
     Dates: start: 20130405, end: 20130604
  2. MYFORTIC [Suspect]
     Route: 048
     Dates: start: 20130607
  3. NO TREATMENT RECEIVED [Suspect]
     Indication: RENAL TRANSPLANT
     Dosage: NO TREATMENT
  4. TACROLIMUS [Suspect]
     Indication: RENAL TRANSPLANT
     Dosage: 5 MG, VO, 2X/DAY
     Route: 048
     Dates: start: 20130412
  5. PREDNISONE [Suspect]
     Indication: IMMUNOSUPPRESSION
     Dosage: 15 MG, VO, 1X/DAY
     Route: 048
     Dates: start: 20130404

REACTIONS (2)
  - Diarrhoea [Recovered/Resolved]
  - Haemorrhagic cyst [Recovering/Resolving]
